FAERS Safety Report 4489655-3 (Version None)
Quarter: 2004Q4

REPORT INFORMATION
  Report Type: 
  Country: None (occurrence: None)
  Receive Date: 20041101
  Receipt Date: 20041006
  Transmission Date: 20050328
  Serious: Yes (Hospitalization, Other)
  Sender: FDA-Public Use
  Company Number: PHBS2004JP13368

PATIENT
  Age: 52 Year
  Sex: Female
  Weight: 41 kg

DRUGS (5)
  1. CYCLOSPORINE [Suspect]
     Indication: STEM CELL TRANSPLANT
     Dosage: 250 MG/DAY
     Route: 065
     Dates: start: 20040101
  2. CYCLOSPORINE [Suspect]
     Dosage: 200 MG/DAY
     Route: 065
  3. SANDIMMUNE [Suspect]
     Indication: STEM CELL TRANSPLANT
     Dosage: 144 MG/D
     Dates: start: 20040411
  4. SANDIMMUNE [Suspect]
     Dosage: 20 MG/D
  5. SANDIMMUNE [Suspect]
     Dosage: 200 MG/D

REACTIONS (8)
  - CHEST X-RAY ABNORMAL [None]
  - CRYPTOGENIC ORGANIZING PNEUMONIA [None]
  - DYSPNOEA [None]
  - GRAFT VERSUS HOST DISEASE [None]
  - HYPOXIA [None]
  - PULMONARY FIBROSIS [None]
  - PYREXIA [None]
  - RESPIRATORY FAILURE [None]
